FAERS Safety Report 4381268-7 (Version None)
Quarter: 2004Q2

REPORT INFORMATION
  Report Type: 
  Country: None (occurrence: None)
  Receive Date: 20040614
  Receipt Date: 20040609
  Transmission Date: 20050107
  Serious: Yes (Death)
  Sender: FDA-Public Use
  Company Number: TCI2004A02334

PATIENT
  Age: 6 Decade

DRUGS (1)
  1. LANSOPRAZOLE [Suspect]
     Indication: DUODENAL ULCER
     Dosage: PER ORAL
     Route: 048

REACTIONS (1)
  - HEPATIC FAILURE [None]
